FAERS Safety Report 12687822 (Version 1)
Quarter: 2016Q3

REPORT INFORMATION
  Report Type: Report from Study
  Country: GB (occurrence: GB)
  Receive Date: 20160826
  Receipt Date: 20160826
  Transmission Date: 20161109
  Serious: Yes (Life-Threatening, Hospitalization, Disabling)
  Sender: FDA-Public Use
  Company Number: GB-ACCORD-043349

PATIENT
  Age: 73 Year
  Sex: Male
  Weight: 49 kg

DRUGS (4)
  1. CAPECITABINE. [Suspect]
     Active Substance: CAPECITABINE
     Indication: ADENOCARCINOMA PANCREAS
     Route: 048
     Dates: start: 20150511, end: 20150610
  2. HUMAN INSULATARD [Concomitant]
     Active Substance: INSULIN HUMAN
     Dates: end: 20150520
  3. LANTUS [Suspect]
     Active Substance: INSULIN GLARGINE
     Indication: PRODUCT USED FOR UNKNOWN INDICATION
     Dates: end: 20150610
  4. RUXOLITINIB [Concomitant]
     Active Substance: RUXOLITINIB
     Dates: start: 20150511

REACTIONS (4)
  - Off label use [Unknown]
  - Product use issue [Unknown]
  - Hypoglycaemia [Recovered/Resolved]
  - Accidental overdose [Recovered/Resolved]

NARRATIVE: CASE EVENT DATE: 20150520
